FAERS Safety Report 17142911 (Version 1)
Quarter: 2019Q4

REPORT INFORMATION
  Report Type: Spontaneous
  Country: US (occurrence: US)
  Receive Date: 20191211
  Receipt Date: 20191211
  Transmission Date: 20200122
  Serious: Yes (Other)
  Sender: FDA-Public Use
  Company Number: None

PATIENT
  Age: 79 Year
  Sex: Male
  Weight: 71.21 kg

DRUGS (6)
  1. DIAZEPAM. [Concomitant]
     Active Substance: DIAZEPAM
  2. METAMUCIL [Concomitant]
     Active Substance: PLANTAGO SEED
  3. ZTLIDO [Suspect]
     Active Substance: LIDOCAINE
  4. GABAPENTIN. [Concomitant]
     Active Substance: GABAPENTIN
  5. PURALAX [Concomitant]
  6. SUBUTEX [Concomitant]
     Active Substance: BUPRENORPHINE HYDROCHLORIDE

REACTIONS (2)
  - Product adhesion issue [None]
  - Medical device site pain [None]

NARRATIVE: CASE EVENT DATE: 20191203
